FAERS Safety Report 4315658-5 (Version None)
Quarter: 2004Q1

REPORT INFORMATION
  Report Type: 
  Country: None (occurrence: None)
  Receive Date: 20040311
  Receipt Date: 20040308
  Transmission Date: 20041129
  Serious: Yes (Hospitalization)
  Sender: FDA-Public Use
  Company Number: NO-BRISTOL-MYERS SQUIBB COMPANY-12527545

PATIENT
  Age: 50 Year
  Sex: Female

DRUGS (7)
  1. NEUROLITE [Suspect]
     Indication: SCAN WITH CONTRAST
     Dates: start: 20040206, end: 20040206
  2. ISMO [Concomitant]
  3. CARDIZEM [Concomitant]
  4. ASPIRIN [Concomitant]
  5. TAMBOCOR [Concomitant]
  6. NITROGLYCERIN [Concomitant]
  7. EPIPEN [Concomitant]

REACTIONS (5)
  - CHILLS [None]
  - COLD SWEAT [None]
  - DYSGEUSIA [None]
  - FEELING HOT [None]
  - PALPITATIONS [None]
